FAERS Safety Report 15596739 (Version 1)
Quarter: 2018Q4

REPORT INFORMATION
  Report Type: Report from Study
  Country: NL (occurrence: NL)
  Receive Date: 20181108
  Receipt Date: 20181108
  Transmission Date: 20190205
  Serious: Yes (Other)
  Sender: FDA-Public Use
  Company Number: NL-AUROBINDO-AUR-APL-2018-046720

PATIENT
  Age: 63 Year
  Sex: Female

DRUGS (7)
  1. PREDNISONE TABLET [Suspect]
     Active Substance: PREDNISONE
     Indication: IMMUNOGLOBULIN G4 RELATED DISEASE
  2. INFLIXIMAB [Concomitant]
     Active Substance: INFLIXIMAB
     Indication: IMMUNOGLOBULIN G4 RELATED DISEASE
  3. METHOTREXATE. [Suspect]
     Active Substance: METHOTREXATE
     Indication: IMMUNOGLOBULIN G4 RELATED DISEASE
     Dosage: UNK
     Route: 065
  4. CICLOSPORIN A [Concomitant]
     Active Substance: CYCLOSPORINE
     Indication: IMMUNOGLOBULIN G4 RELATED DISEASE
     Dosage: UNK
     Route: 065
  5. PREDNISONE TABLET [Suspect]
     Active Substance: PREDNISONE
     Indication: AUTOINFLAMMATORY DISEASE
     Dosage: UNK
     Route: 065
  6. CYCLOPHOSPHAMIDE. [Suspect]
     Active Substance: CYCLOPHOSPHAMIDE
     Indication: IMMUNOGLOBULIN G4 RELATED DISEASE
     Dosage: UNK
     Route: 065
  7. INFLIXIMAB [Concomitant]
     Active Substance: INFLIXIMAB
     Indication: AUTOINFLAMMATORY DISEASE
     Dosage: UNK
     Route: 065

REACTIONS (5)
  - Rebound effect [Unknown]
  - Off label use [Unknown]
  - Disease recurrence [Unknown]
  - Immunoglobulin G4 related disease [Unknown]
  - Diabetes mellitus [Unknown]
